FAERS Safety Report 9032528 (Version 1)
Quarter: 2013Q1

REPORT INFORMATION
  Report Type: Spontaneous
  Country: AU (occurrence: None)
  Receive Date: 20130108
  Receipt Date: 20130108
  Transmission Date: 20140127
  Serious: Yes (Hospitalization, Other)
  Sender: FDA-Public Use
  Company Number: 2012AP004425

PATIENT
  Age: 47 Year
  Sex: Female

DRUGS (3)
  1. GABAPENTIN CAPSULES (GABAPENTIN) [Suspect]
     Indication: MULTIPLE SCLEROSIS
     Route: 048
     Dates: start: 20121112, end: 20121112
  2. DERALIN/00030001/(PROPRANOLOL) [Concomitant]
  3. COPAXONE/01410902/(GLATIRAMER ACETATE) [Concomitant]

REACTIONS (2)
  - Paralysis [None]
  - Blindness [None]
